FAERS Safety Report 9608662 (Version 1)
Quarter: 2013Q4

REPORT INFORMATION
  Report Type: Spontaneous
  Country: US (occurrence: None)
  Receive Date: 20131007
  Receipt Date: 20131007
  Transmission Date: 20140711
  Serious: Yes (Hospitalization)
  Sender: FDA-Public Use
  Company Number: None

PATIENT
  Age: 69 Year
  Sex: Female
  Weight: 76.9 kg

DRUGS (23)
  1. TOLVAPTAN [Suspect]
     Indication: ASCITES
     Route: 048
     Dates: start: 20130826, end: 20130902
  2. CLONIDINE [Concomitant]
  3. NEXIUM [Concomitant]
  4. FUROSEMIDE [Concomitant]
  5. ATARAX [Concomitant]
  6. LANTUS [Concomitant]
  7. HUMALOG SLIDING SCALE [Concomitant]
  8. FUROSEMIDE [Concomitant]
  9. ATARAX [Concomitant]
  10. LANTUS [Concomitant]
  11. HUMALOG SLIDING SCALE [Concomitant]
  12. LACTULOSE [Concomitant]
  13. LORAZEPAM [Concomitant]
  14. CETIRIZINE [Concomitant]
  15. ZINC [Concomitant]
  16. VITAMIN A [Concomitant]
  17. VITAMIN D [Concomitant]
  18. ATENOLOL [Concomitant]
  19. TYLENOL [Concomitant]
  20. ALEVE [Concomitant]
  21. MULTIVITAMIN [Concomitant]
  22. XIFAXAN [Concomitant]
  23. CHOLESYTRAMINE [Concomitant]

REACTIONS (5)
  - Chest pain [None]
  - Dyspnoea [None]
  - Wheezing [None]
  - Pleural effusion [None]
  - Pyrexia [None]
